FAERS Safety Report 17819904 (Version 1)
Quarter: 2020Q2

REPORT INFORMATION
  Report Type: Spontaneous
  Country: CA (occurrence: CA)
  Receive Date: 20200524
  Receipt Date: 20200524
  Transmission Date: 20200714
  Serious: Yes (Other)
  Sender: FDA-Public Use
  Company Number: CA-BAXTER-2020BAX010750

PATIENT
  Sex: Female

DRUGS (3)
  1. VENOFER [Suspect]
     Active Substance: IRON SUCROSE
     Indication: IRON DEFICIENCY ANAEMIA
     Dosage: DOSAGE FORM: SOLUTION INTRAVENOUS
     Route: 042
  2. 0.9% SODIUM CHLORIDE INJECTION [Suspect]
     Active Substance: SODIUM CHLORIDE
     Indication: IRON DEFICIENCY ANAEMIA
     Dosage: DOSAGE FORM: SOLUTION INTRAVENOUS
     Route: 042
  3. VENOFER [Suspect]
     Active Substance: IRON SUCROSE
     Dosage: DOSAGE FORM: SOLUTION INTRAVENOUS
     Route: 042

REACTIONS (2)
  - Hypotension [Unknown]
  - Back pain [Unknown]
